FAERS Safety Report 6712178-5 (Version None)
Quarter: 2010Q2

REPORT INFORMATION
  Report Type: 
  Country: None (occurrence: None)
  Receive Date: 20100505
  Receipt Date: 20100308
  Transmission Date: 20101027
  Serious: Yes (Hospitalization)
  Sender: FDA-Public Use
  Company Number: PHEH2009US14925

PATIENT
  Sex: Male
  Weight: 86.35 kg

DRUGS (1)
  1. EXJADE [Suspect]
     Indication: IRON METABOLISM DISORDER
     Dosage: 875 MG, BID
     Route: 048
     Dates: start: 20091016

REACTIONS (4)
  - BACTERIAL INFECTION [None]
  - COUGH [None]
  - SINUS CONGESTION [None]
  - TOOTH REPAIR [None]
